FAERS Safety Report 9916116 (Version 1)
Quarter: 2014Q1

REPORT INFORMATION
  Report Type: Spontaneous
  Country: FR (occurrence: None)
  Receive Date: 20140219
  Receipt Date: 20140219
  Transmission Date: 20141002
  Serious: Yes (Hospitalization)
  Sender: FDA-Public Use
  Company Number: DSM-2014-00152

PATIENT
  Age: 82 Year
  Sex: Male

DRUGS (2)
  1. SEVIKAR(OLMESARTAN MEDOXOMIL, AMLODIPINE BESILATE)(TABLET)(OLMESARTAN MEDOXOMIL, AMLODIPINE BESILATE) [Suspect]
     Indication: HYPERTENSION
     Dosage: ORAL
     Route: 048
     Dates: end: 20140114
  2. ZOCOR (SIMVASTATIN) (SIMVASTATIN) [Concomitant]

REACTIONS (3)
  - Enterocolitis [None]
  - Intestinal villi atrophy [None]
  - Gastrointestinal hypomotility [None]
